FAERS Safety Report 6536805-0 (Version None)
Quarter: 2010Q1

REPORT INFORMATION
  Report Type: 
  Country: None (occurrence: None)
  Receive Date: 20100113
  Receipt Date: 20100107
  Transmission Date: 20100710
  Serious: Yes (Hospitalization)
  Sender: FDA-Public Use
  Company Number: US-AMGEN-QUU374909

PATIENT
  Sex: Male

DRUGS (3)
  1. ENBREL [Suspect]
     Indication: PSORIASIS
     Route: 058
     Dates: start: 20081218, end: 20090917
  2. ENBREL [Suspect]
     Indication: PSORIATIC ARTHROPATHY
  3. NSAID [Concomitant]

REACTIONS (1)
  - PANCREATIC CARCINOMA [None]
